FAERS Safety Report 20769591 (Version 2)
Quarter: 2022Q2

REPORT INFORMATION
  Report Type: Spontaneous
  Country: US (occurrence: US)
  Receive Date: 20220429
  Receipt Date: 20220518
  Transmission Date: 20220721
  Serious: Yes (Other)
  Sender: FDA-Public Use
  Company Number: US-IBSA PHARMA INC.-2022IBS000119

PATIENT

DRUGS (1)
  1. TIROSINT [Suspect]
     Active Substance: LEVOTHYROXINE SODIUM
     Indication: Thyroid hormone replacement therapy
     Dosage: 150 ?G, QD
     Route: 048
     Dates: start: 2014, end: 20220414

REACTIONS (6)
  - Paralysis [Recovered/Resolved]
  - COVID-19 [Unknown]
  - Lethargy [Recovered/Resolved]
  - Malaise [Unknown]
  - Somnolence [Unknown]
  - Product quality issue [Unknown]

NARRATIVE: CASE EVENT DATE: 20220414
